FAERS Safety Report 21297397 (Version 2)
Quarter: 2022Q4

REPORT INFORMATION
  Report Type: Report from Study
  Country: US (occurrence: US)
  Receive Date: 20220906
  Receipt Date: 20221024
  Transmission Date: 20230113
  Serious: Yes (Life-Threatening, Hospitalization, Other)
  Sender: FDA-Public Use
  Company Number: US-BRISTOL-MYERS SQUIBB COMPANY-2022-101186

PATIENT
  Age: 74 Year
  Sex: Female
  Weight: 74.8 kg

DRUGS (4)
  1. NIVOLUMAB [Suspect]
     Active Substance: NIVOLUMAB
     Indication: Hodgkin^s disease
     Dosage: 240 MG IV ON DAYS 1 AND 15 [ANDLT;18 YEARS: 3 MG/KG (UP TO 240 MG) IV ON DAYS 1 AND 15
     Route: 042
     Dates: start: 20220817, end: 20220817
  2. DACARBAZINE [Suspect]
     Active Substance: DACARBAZINE
     Indication: Hodgkin^s disease
     Dosage: DAY 1 AND 15-TOTAL DOSE (650MG)
     Route: 042
     Dates: start: 20220817, end: 20220817
  3. DOXORUBICIN HYDROCHLORIDE [Suspect]
     Active Substance: DOXORUBICIN HYDROCHLORIDE
     Indication: Hodgkin^s disease
     Dosage: DAYS 1 AND 15 (TOTAL DOSE 44MG)
     Route: 042
     Dates: start: 20220817, end: 20220817
  4. VINBLASTINE SULFATE [Suspect]
     Active Substance: VINBLASTINE SULFATE
     Indication: Hodgkin^s disease
     Dosage: DAYS 1 AND 15 TOTAL DOSE 10MG
     Route: 042
     Dates: start: 20220817, end: 20220817

REACTIONS (4)
  - Sepsis [Recovering/Resolving]
  - Febrile neutropenia [Recovered/Resolved]
  - Neutrophil count decreased [Recovered/Resolved]
  - White blood cell count decreased [Recovered/Resolved]

NARRATIVE: CASE EVENT DATE: 20220824
